FAERS Safety Report 25967920 (Version 1)
Quarter: 2025Q4

REPORT INFORMATION
  Report Type: Report from Study
  Country: US (occurrence: US)
  Receive Date: 20251028
  Receipt Date: 20251028
  Transmission Date: 20260117
  Serious: No
  Sender: STALLERGENES
  Company Number: US-STALCOR-2025-AER-02526

PATIENT
  Age: 32 Month
  Sex: Male

DRUGS (2)
  1. PALFORZIA [Suspect]
     Active Substance: PEANUT
     Indication: Food allergy
     Dosage: REACTIVE DOSE, DISPENSED ON 14-AUG-2025
     Route: 048
     Dates: end: 202508
  2. PALFORZIA [Suspect]
     Active Substance: PEANUT
     Dosage: IDE (1-3) WAS ALSO DISPENSED ON 14-AUG-2025
     Route: 048
     Dates: end: 202508

REACTIONS (1)
  - Abdominal pain upper [Unknown]

NARRATIVE: CASE EVENT DATE: 20250819
